FAERS Safety Report 22595826 (Version 2)
Quarter: 2025Q1

REPORT INFORMATION
  Report Type: Spontaneous
  Country: US (occurrence: US)
  Receive Date: 20230613
  Receipt Date: 20250117
  Transmission Date: 20250409
  Serious: No
  Sender: PFIZER
  Company Number: US-PFIZER INC-PV202300104123

PATIENT
  Age: 79 Year
  Sex: Male
  Weight: 81.633 kg

DRUGS (2)
  1. TIKOSYN [Suspect]
     Active Substance: DOFETILIDE
     Dosage: TAKE 1 CAPSULE (250 MCG TOTAL) BY MOUTH EVERY 12 HOURS
     Route: 048
     Dates: start: 20240830
  2. TIKOSYN [Suspect]
     Active Substance: DOFETILIDE

REACTIONS (3)
  - Visual impairment [Unknown]
  - Wrong technique in product usage process [Unknown]
  - Product dispensing error [Unknown]
